FAERS Safety Report 14743557 (Version 2)
Quarter: 2018Q2

REPORT INFORMATION
  Report Type: Report from Study
  Country: US (occurrence: US)
  Receive Date: 20180410
  Receipt Date: 20180417
  Transmission Date: 20180711
  Serious: Yes (Hospitalization)
  Sender: FDA-Public Use
  Company Number: US-EXELIXIS-CABO-18013402

PATIENT
  Sex: Female

DRUGS (11)
  1. FISH OIL [Concomitant]
     Active Substance: FISH OIL
  2. COQ 10 [Concomitant]
     Active Substance: UBIDECARENONE
  3. FOLIC ACID. [Concomitant]
     Active Substance: FOLIC ACID
  4. CABOMETYX [Suspect]
     Active Substance: CABOZANTINIB S-MALATE
     Indication: HEPATIC CANCER
     Dosage: 60 MG, QD
     Route: 048
     Dates: start: 20180314
  5. LACTULOSE. [Suspect]
     Active Substance: LACTULOSE
  6. VITAMIN B12 [Concomitant]
     Active Substance: CYANOCOBALAMIN
  7. VITAMIN E [Concomitant]
     Active Substance: .ALPHA.-TOCOPHEROL
  8. VITAMIN D [Concomitant]
     Active Substance: CHOLECALCIFEROL
  9. FERROUS SULFATE. [Concomitant]
     Active Substance: FERROUS SULFATE
  10. IRON [Concomitant]
     Active Substance: IRON
  11. CALCIUM [Concomitant]
     Active Substance: CALCIUM

REACTIONS (7)
  - Gait disturbance [Unknown]
  - Nausea [Unknown]
  - Constipation [Unknown]
  - Diarrhoea [Unknown]
  - Ascites [Unknown]
  - Off label use [Unknown]
  - Asthenia [Unknown]
